FAERS Safety Report 25075493 (Version 2)
Quarter: 2025Q1

REPORT INFORMATION
  Report Type: Spontaneous
  Country: US (occurrence: US)
  Receive Date: 20250313
  Receipt Date: 20250318
  Transmission Date: 20250409
  Serious: No
  Sender: PURDUE
  Company Number: US-PURDUE PHARMA-USA-2025-0315971

PATIENT
  Sex: Male
  Weight: 100.7 kg

DRUGS (1)
  1. OXYCODONE HYDROCHLORIDE [Suspect]
     Active Substance: OXYCODONE HYDROCHLORIDE
     Indication: Pain management
     Dosage: 30 MILLIGRAM FOUR TIMES A DAY
     Route: 048

REACTIONS (2)
  - Inadequate analgesia [Unknown]
  - Product size issue [Unknown]
